FAERS Safety Report 13784306 (Version 1)
Quarter: 2017Q3

REPORT INFORMATION
  Report Type: Spontaneous
  Country: TR (occurrence: TR)
  Receive Date: 20170724
  Receipt Date: 20170724
  Transmission Date: 20171127
  Serious: Yes (Life-Threatening, Other)
  Sender: FDA-Public Use
  Company Number: PHHY2017TR105465

PATIENT
  Age: 49 Year
  Sex: Male

DRUGS (4)
  1. ENOXAPARIN [Concomitant]
     Active Substance: ENOXAPARIN
     Indication: MYOCARDIAL INFARCTION
     Dosage: 160 MG, QD
     Route: 065
  2. PRASUGREL. [Concomitant]
     Active Substance: PRASUGREL
     Indication: MYOCARDIAL INFARCTION
     Dosage: 10 MG, QD
     Route: 065
  3. ATORVASTATIN [Suspect]
     Active Substance: ATORVASTATIN
     Indication: MYOCARDIAL INFARCTION
     Dosage: 10 MG, QD
     Route: 065
  4. DILTIAZEM. [Concomitant]
     Active Substance: DILTIAZEM
     Indication: MYOCARDIAL INFARCTION
     Dosage: 90 MG, QD
     Route: 065

REACTIONS (6)
  - Dermatomyositis [Recovered/Resolved]
  - Rash generalised [Recovered/Resolved]
  - Blood creatine phosphokinase increased [Unknown]
  - Myopathy [Recovered/Resolved]
  - Erythema [Recovered/Resolved]
  - Muscular weakness [Recovered/Resolved]

NARRATIVE: CASE EVENT DATE: 201411
